FAERS Safety Report 6955929-7 (Version None)
Quarter: 2010Q3

REPORT INFORMATION
  Report Type: 
  Country: None (occurrence: None)
  Receive Date: 20100830
  Receipt Date: 20100825
  Transmission Date: 20110219
  Serious: Yes (Life-Threatening)
  Sender: FDA-Public Use
  Company Number: JP-SANOFI-AVENTIS-200911924JP

PATIENT
  Age: 44 Year
  Sex: Male
  Weight: 77 kg

DRUGS (6)
  1. TAXOTERE [Suspect]
     Indication: PROSTATE CANCER
     Route: 041
     Dates: start: 20090508, end: 20090508
  2. TAXOTERE [Suspect]
     Route: 041
     Dates: start: 20090529, end: 20090529
  3. PREDNISOLONE [Concomitant]
     Indication: PROSTATE CANCER
     Route: 048
     Dates: start: 20090508
  4. OXYCONTIN [Concomitant]
     Indication: PAIN
     Route: 048
     Dates: start: 20090508
  5. OXINORM [Concomitant]
     Indication: PAIN
     Route: 048
     Dates: start: 20090508
  6. GASTER D [Concomitant]
     Indication: DRUG TOXICITY PROPHYLAXIS
     Route: 048
     Dates: start: 20090508

REACTIONS (2)
  - DYSPNOEA [None]
  - HYPOXIA [None]
